FAERS Safety Report 5273862-6 (Version None)
Quarter: 2007Q1

REPORT INFORMATION
  Report Type: 
  Country: None (occurrence: None)
  Receive Date: 20070323
  Receipt Date: 20070312
  Transmission Date: 20070707
  Serious: Yes (Other)
  Sender: FDA-Public Use
  Company Number: DE-ROCHE-487164

PATIENT
  Age: 21 Year
  Sex: Male

DRUGS (1)
  1. ROACCUTAN [Suspect]
     Indication: DRUG USE FOR UNKNOWN INDICATION
     Dosage: GIVEN FOR ABOUT SEVEN MONTHS.
     Route: 065
     Dates: start: 19981231

REACTIONS (2)
  - AXILLARY PAIN [None]
  - GYNAECOMASTIA [None]
